FAERS Safety Report 4499067-4 (Version None)
Quarter: 2004Q4

REPORT INFORMATION
  Report Type: 
  Country: None (occurrence: None)
  Receive Date: 20041111
  Receipt Date: 20041104
  Transmission Date: 20050328
  Serious: Yes (Hospitalization)
  Sender: FDA-Public Use
  Company Number: FR-BRISTOL-MYERS SQUIBB COMPANY-12755948

PATIENT
  Age: 74 Year
  Sex: Female

DRUGS (9)
  1. COAPROVEL TABS 300MG/12.5MG [Suspect]
     Indication: HYPERTENSION
     Route: 048
     Dates: end: 20040219
  2. OMEPRAZOLE [Suspect]
     Indication: PROPHYLAXIS
     Route: 048
     Dates: end: 20040101
  3. LEVOTHYROX [Concomitant]
     Indication: HYPOTHYROIDISM
  4. NSAID [Concomitant]
  5. CEFAZOLIN [Concomitant]
     Indication: BRONCHITIS
     Dates: start: 20040211
  6. CLARITHROMYCIN [Concomitant]
     Indication: BRONCHITIS
     Dates: start: 20040211
  7. BUDESONIDE [Concomitant]
     Indication: BRONCHITIS
     Dates: start: 20040211
  8. BRONCHOKOD [Concomitant]
     Indication: BRONCHITIS
     Dates: start: 20040211
  9. SOTALEX [Concomitant]

REACTIONS (4)
  - FALL [None]
  - HYPONATRAEMIA [None]
  - LOSS OF CONSCIOUSNESS [None]
  - MALAISE [None]
